FAERS Safety Report 7270961-4 (Version None)
Quarter: 2011Q1

REPORT INFORMATION
  Report Type: 
  Country: None (occurrence: None)
  Receive Date: 20110202
  Receipt Date: 20110125
  Transmission Date: 20110831
  Serious: Yes (Hospitalization)
  Sender: FDA-Public Use
  Company Number: FR-PFIZER INC-2010178371

PATIENT
  Age: 61 Year
  Sex: Male

DRUGS (3)
  1. EUPANTOL [Suspect]
     Dosage: UNK
     Dates: start: 20101201, end: 20101213
  2. ROCEPHIN [Suspect]
     Indication: LUNG DISORDER
     Dosage: UNK
     Dates: start: 20101201, end: 20101213
  3. CALCIPARINE [Concomitant]
     Indication: PULMONARY EMBOLISM
     Dosage: UNK
     Dates: start: 20101126, end: 20101202

REACTIONS (2)
  - ANAEMIA [None]
  - THROMBOCYTOPENIA [None]
